FAERS Safety Report 7422093-X (Version None)
Quarter: 2011Q2

REPORT INFORMATION
  Report Type: 
  Country: None (occurrence: None)
  Receive Date: 20110418
  Receipt Date: 20110415
  Transmission Date: 20111010
  Serious: Yes (Other)
  Sender: FDA-Public Use
  Company Number: US-MERCK-1103USA03724

PATIENT

DRUGS (1)
  1. IVEMEND [Suspect]
     Route: 041

REACTIONS (1)
  - ANAPHYLACTIC SHOCK [None]
